FAERS Safety Report 18327051 (Version 3)
Quarter: 2020Q4

REPORT INFORMATION
  Report Type: Spontaneous
  Country: US (occurrence: US)
  Receive Date: 20200929
  Receipt Date: 20201202
  Transmission Date: 20210113
  Serious: No
  Sender: FDA-Public Use
  Company Number: US-PFIZER INC-2020375255

PATIENT
  Age: 79 Year
  Sex: Female

DRUGS (1)
  1. IBRANCE [Suspect]
     Active Substance: PALBOCICLIB
     Indication: BREAST CANCER METASTATIC
     Dosage: 125 MG (ONE TABLET)

REACTIONS (5)
  - White blood cell count decreased [Not Recovered/Not Resolved]
  - Product packaging difficult to open [Unknown]
  - Product storage error [Unknown]
  - Asthenia [Unknown]
  - Pain [Unknown]
